FAERS Safety Report 5029179-8 (Version None)
Quarter: 2006Q2

REPORT INFORMATION
  Report Type: 
  Country: None (occurrence: None)
  Receive Date: 20060613
  Receipt Date: 20060601
  Transmission Date: 20061013
  Serious: Yes (Death, Hospitalization)
  Sender: FDA-Public Use
  Company Number: HQWYE641701JUN06

PATIENT
  Age: 41 Year
  Sex: Male

DRUGS (7)
  1. EFFEXOR XR [Suspect]
     Indication: BIPOLAR DISORDER
     Dosage: 150 MG 1X PER 1 DAY, ORAL; 75 MG 1X PER 1 DAY, ORAL
     Route: 048
     Dates: start: 20060316, end: 20060429
  2. EFFEXOR XR [Suspect]
     Indication: OBSESSIVE-COMPULSIVE DISORDER
     Dosage: 150 MG 1X PER 1 DAY, ORAL; 75 MG 1X PER 1 DAY, ORAL
     Route: 048
     Dates: start: 20060316, end: 20060429
  3. EFFEXOR XR [Suspect]
     Indication: BIPOLAR DISORDER
     Dosage: 150 MG 1X PER 1 DAY, ORAL; 75 MG 1X PER 1 DAY, ORAL
     Route: 048
     Dates: start: 20060430, end: 20060528
  4. EFFEXOR XR [Suspect]
     Indication: OBSESSIVE-COMPULSIVE DISORDER
     Dosage: 150 MG 1X PER 1 DAY, ORAL; 75 MG 1X PER 1 DAY, ORAL
     Route: 048
     Dates: start: 20060430, end: 20060528
  5. ZYBAN [Concomitant]
  6. CARBOLITHIUM (LITHIUM CARBONATE) [Concomitant]
  7. ATENOLOL [Concomitant]

REACTIONS (5)
  - BRAIN DEATH [None]
  - BRAIN OEDEMA [None]
  - CEREBROVASCULAR ACCIDENT [None]
  - CONDITION AGGRAVATED [None]
  - HYPERTENSIVE CRISIS [None]
